FAERS Safety Report 15803505 (Version 2)
Quarter: 2019Q2

REPORT INFORMATION
  Report Type: Spontaneous
  Country: IE (occurrence: IE)
  Receive Date: 20190109
  Receipt Date: 20190624
  Transmission Date: 20190711
  Serious: Yes (Other)
  Sender: FDA-Public Use
  Company Number: IE-NOVOPROD-641049

PATIENT
  Age: 56 Year
  Sex: Male

DRUGS (6)
  1. GLUCOPHAGE [Concomitant]
     Active Substance: METFORMIN HYDROCHLORIDE
     Indication: TYPE 2 DIABETES MELLITUS
     Dosage: 500 MG, BID
     Route: 065
     Dates: start: 20171207
  2. LIPITOR [Concomitant]
     Active Substance: ATORVASTATIN CALCIUM
     Indication: BLOOD CHOLESTEROL INCREASED
     Dosage: 10 MG
     Route: 065
     Dates: start: 20171201
  3. OZEMPIC [Suspect]
     Active Substance: SEMAGLUTIDE
     Indication: TYPE 2 DIABETES MELLITUS
     Dosage: 0.5 MG, QW
     Route: 058
     Dates: start: 20181103
  4. VIAGRA [Concomitant]
     Active Substance: SILDENAFIL CITRATE
     Indication: ERECTILE DYSFUNCTION
     Dosage: 100 MG
     Route: 048
     Dates: start: 20171201
  5. OZEMPIC [Suspect]
     Active Substance: SEMAGLUTIDE
     Dosage: 0.25 MG
     Route: 058
     Dates: end: 20181208
  6. RANITIC [Concomitant]
     Active Substance: RANITIDINE HYDROCHLORIDE
     Indication: PEPTIC ULCER
     Dosage: 300 MG, QD
     Route: 048
     Dates: start: 20171201

REACTIONS (5)
  - Nausea [Recovered/Resolved]
  - Abdominal discomfort [Recovered/Resolved]
  - Abdominal pain [Recovered/Resolved]
  - Vomiting [Recovered/Resolved]
  - Diarrhoea [Recovered/Resolved]

NARRATIVE: CASE EVENT DATE: 20181212
